FAERS Safety Report 20694972 (Version 1)
Quarter: 2022Q2

REPORT INFORMATION
  Report Type: Spontaneous
  Country: ES (occurrence: ES)
  Receive Date: 20220411
  Receipt Date: 20220411
  Transmission Date: 20220721
  Serious: Yes (Hospitalization)
  Sender: FDA-Public Use
  Company Number: None

PATIENT
  Age: 93 Year
  Sex: Female
  Weight: 72 kg

DRUGS (4)
  1. FUROSEMIDE [Suspect]
     Active Substance: FUROSEMIDE
     Indication: Hepatic cirrhosis
     Dosage: STRENGTH: 40 MG, 1-0-0
     Route: 048
     Dates: start: 20190912, end: 20220131
  2. PROPRANOLOL [Suspect]
     Active Substance: PROPRANOLOL HYDROCHLORIDE
     Indication: Varices oesophageal
     Dosage: STRENGTH: 10 MG, 2-0-2
     Route: 048
     Dates: start: 20190402, end: 20220131
  3. SPIRONOLACTONE [Suspect]
     Active Substance: SPIRONOLACTONE
     Indication: Hepatic cirrhosis
     Dosage: STRENGTH: 100 MG, 1-0-0
     Route: 048
     Dates: start: 20190912, end: 20220131
  4. OMNIPAQUE [Suspect]
     Active Substance: IOHEXOL
     Indication: Computerised tomogram abdomen
     Dosage: STRENGTH: 350 MG IODINE /ML SOLUTION FOR INJECTION, 1 VIAL OF 200 ML,
     Route: 042
     Dates: start: 20220128, end: 20220128

REACTIONS (1)
  - Acute kidney injury [Recovered/Resolved]

NARRATIVE: CASE EVENT DATE: 20220130
